FAERS Safety Report 4752379-9 (Version None)
Quarter: 2005Q3

REPORT INFORMATION
  Report Type: 
  Country: None (occurrence: None)
  Receive Date: 20050823
  Receipt Date: 20050810
  Transmission Date: 20060218
  Serious: Yes (Life-Threatening, Other)
  Sender: FDA-Public Use
  Company Number: 2005114202

PATIENT
  Age: 49 Year
  Sex: Female
  Weight: 67 kg

DRUGS (3)
  1. ATORVASTATIN CALCIUM [Suspect]
     Indication: BLOOD CHOLESTEROL INCREASED
     Dosage: (10 MG,), ORAL
     Route: 048
     Dates: end: 20050723
  2. ACETYLSALICYLIC ACID SRT [Concomitant]
  3. ATENOLOL [Concomitant]

REACTIONS (2)
  - HEPATIC FAILURE [None]
  - HEPATITIS [None]
